FAERS Safety Report 25023363 (Version 1)
Quarter: 2025Q1

REPORT INFORMATION
  Report Type: Spontaneous
  Country: US (occurrence: None)
  Receive Date: 20250228
  Receipt Date: 20250228
  Transmission Date: 20250409
  Serious: Yes (Hospitalization)
  Sender: FDA-CTU
  Company Number: None

PATIENT
  Sex: Female

DRUGS (5)
  1. AMBRISENTAN [Suspect]
     Active Substance: AMBRISENTAN
     Indication: Pulmonary arterial hypertension
     Dosage: GIVE ONE-HALF TABLET BY MOUTH DAILY
     Route: 048
     Dates: start: 20241010
  2. ASPIRIN [Concomitant]
     Active Substance: ASPIRIN
  3. PROPRANOLOL [Concomitant]
     Active Substance: PROPRANOLOL HYDROCHLORIDE
  4. SILDENAFIL [Concomitant]
     Active Substance: SILDENAFIL
  5. TADLIQ [Concomitant]
     Active Substance: TADALAFIL

REACTIONS (1)
  - Illness [None]
